FAERS Safety Report 8028947-8 (Version None)
Quarter: 2012Q1

REPORT INFORMATION
  Report Type: 
  Country: None (occurrence: None)
  Receive Date: 20120106
  Receipt Date: 20120103
  Transmission Date: 20120608
  Serious: Yes (Other)
  Sender: FDA-Public Use
  Company Number: US-TEVA-315799USA

PATIENT
  Sex: Male
  Weight: 108.96 kg

DRUGS (11)
  1. PROCATEROL HCL [Concomitant]
     Route: 055
  2. CLOPIDOGREL [Concomitant]
     Dosage: 75 MILLIGRAM;
     Route: 048
  3. MONTELUKAST [Concomitant]
     Dosage: 10 MILLIGRAM;
     Route: 048
  4. ALBUTEROL SULFATE AUTOHALER [Concomitant]
     Route: 055
  5. RAMIPRIL [Concomitant]
     Dosage: 10 MILLIGRAM;
     Route: 048
  6. FUROSEMIDE [Concomitant]
     Dosage: 20 MILLIGRAM;
     Route: 048
  7. SIMVASTATIN [Concomitant]
     Dosage: 20 MILLIGRAM;
     Route: 048
  8. ASPIRIN [Concomitant]
     Dosage: 325 MILLIGRAM;
     Route: 048
  9. QVAR 40 [Suspect]
     Indication: ASTHMA
     Dosage: 160 MICROGRAM; 2 PUFFS
     Route: 055
     Dates: start: 20100101
  10. CARVEDILOL [Concomitant]
     Dosage: 50 MILLIGRAM;
     Route: 048
  11. LORAZEPAM [Concomitant]
     Dosage: .5 MILLIGRAM;
     Route: 048

REACTIONS (6)
  - EUPHORIC MOOD [None]
  - DRUG INEFFECTIVE [None]
  - CHEST PAIN [None]
  - INSOMNIA [None]
  - PROSTATE CANCER [None]
  - ARRHYTHMIA [None]
